FAERS Safety Report 17044882 (Version 4)
Quarter: 2019Q4

REPORT INFORMATION
  Report Type: Spontaneous
  Country: US (occurrence: FR)
  Receive Date: 20191118
  Receipt Date: 20191220
  Transmission Date: 20200122
  Serious: Yes (Hospitalization, Other)
  Sender: FDA-Public Use
  Company Number: US-PFIZER INC-K200901140

PATIENT
  Age: 83 Year
  Sex: Female

DRUGS (18)
  1. LIPANTHYL [Concomitant]
     Active Substance: FENOFIBRATE
     Dosage: 145 MG, 1X/DAY (QD (EVERDAY))
     Route: 048
  2. OGASTORO [Concomitant]
     Active Substance: LANSOPRAZOLE
     Dosage: UNK
     Route: 048
  3. TRIATEC [RAMIPRIL] [Suspect]
     Active Substance: RAMIPRIL
     Dosage: 2.5 MG, 1X/DAY(2.5 MG, QD (ONCE A DAY)
     Route: 048
  4. FUROSEMIDE. [Suspect]
     Active Substance: FUROSEMIDE
     Indication: HYPERTENSION
     Dosage: 20 MG, 2X/DAY
     Route: 048
  5. ALDOMET [Suspect]
     Active Substance: METHYLDOPA
     Dosage: 250 MG, 3X/DAY
     Route: 048
     Dates: end: 20090427
  6. FUROSEMIDE GNR [Suspect]
     Active Substance: FUROSEMIDE
     Indication: HYPERTENSION
     Dosage: 20 MG, 2X/DAY
     Route: 065
     Dates: end: 20090426
  7. DAONIL [Suspect]
     Active Substance: GLYBURIDE
     Dosage: 5 MG, 1X/DAY(QD (ONCE A DAY)
     Dates: end: 20090426
  8. GLUCOPHAGE [Concomitant]
     Active Substance: METFORMIN HYDROCHLORIDE
     Dosage: 1000 MG, UNK
     Route: 048
  9. METFORMIN HCL [Suspect]
     Active Substance: METFORMIN HYDROCHLORIDE
     Indication: DIABETES MELLITUS
     Dosage: 1000 MG, 2X/DAY
     Route: 048
     Dates: start: 2009
  10. GLUCOPHAGE [Concomitant]
     Active Substance: METFORMIN HYDROCHLORIDE
     Indication: DIABETES MELLITUS
     Dosage: 1000 MG, 2X/DAY
     Route: 048
     Dates: end: 200904
  11. NEURONTIN [Concomitant]
     Active Substance: GABAPENTIN
     Dosage: 300 MG, 1X/DAY(QD (ONCE A DAY))
  12. TRIATEC [RAMIPRIL] [Suspect]
     Active Substance: RAMIPRIL
     Indication: HYPERTENSION
     Dosage: 2.5 MG, 1X/DAY
     Route: 048
     Dates: end: 20090427
  13. CARDENSIEL [Suspect]
     Active Substance: BISOPROLOL FUMARATE
     Indication: CARDIAC FAILURE
     Dosage: 1.25 MG, 2X/DAY
     Route: 065
     Dates: end: 20090427
  14. CARDENSIEL [Suspect]
     Active Substance: BISOPROLOL FUMARATE
     Dosage: 1.25 MG, 1X/DAY (QD (ONCE A DAY)
     Route: 065
  15. COUMADINE [Concomitant]
     Active Substance: WARFARIN SODIUM
     Dosage: 2 MG, UNK
     Route: 048
  16. DAONIL [Suspect]
     Active Substance: GLYBURIDE
     Indication: DIABETES MELLITUS
     Dosage: 5 MG, 3X/DAY
     Route: 048
     Dates: end: 200904
  17. ALDOMET [Suspect]
     Active Substance: METHYLDOPA
     Dosage: 250 MG, 3X/DAY(TID (THREE TIMES A DAY))
     Route: 048
  18. NEURONTIN [Concomitant]
     Active Substance: GABAPENTIN
     Dosage: 300 MG, 3X/DAY
     Route: 048

REACTIONS (11)
  - Arrhythmia [Recovered/Resolved]
  - Dysstasia [Recovered/Resolved]
  - Prerenal failure [Recovered/Resolved]
  - Dehydration [Recovered/Resolved]
  - Bradyarrhythmia [Unknown]
  - Erysipelas [Recovered/Resolved]
  - Hypotension [Unknown]
  - Transient ischaemic attack [Recovered/Resolved]
  - Hypoglycaemia [Recovered/Resolved]
  - General physical health deterioration [Recovered/Resolved]
  - Asthenia [Recovered/Resolved]

NARRATIVE: CASE EVENT DATE: 200904
